FAERS Safety Report 23717265 (Version 2)
Quarter: 2024Q2

REPORT INFORMATION
  Report Type: Report from Study
  Country: US (occurrence: US)
  Receive Date: 20240408
  Receipt Date: 20240610
  Transmission Date: 20240716
  Serious: No
  Sender: FDA-Public Use
  Company Number: US-SA-SAC20240402000242

PATIENT
  Age: 62 Year
  Sex: Male

DRUGS (1)
  1. DUPIXENT [Suspect]
     Active Substance: DUPILUMAB
     Indication: Dermatitis atopic
     Dosage: 300MG QOW
     Route: 058

REACTIONS (4)
  - Dry skin [Unknown]
  - Pruritus [Not Recovered/Not Resolved]
  - Skin exfoliation [Unknown]
  - Drug ineffective [Unknown]
